FAERS Safety Report 7983468-3 (Version None)
Quarter: 2011Q4

REPORT INFORMATION
  Report Type: 
  Country: None (occurrence: None)
  Receive Date: 20111215
  Receipt Date: 20111206
  Transmission Date: 20120403
  Serious: Yes (Hospitalization, Other)
  Sender: FDA-Public Use
  Company Number: US-GILEAD-2011-0043999

PATIENT
  Sex: Female

DRUGS (13)
  1. MS CONTIN [Concomitant]
     Indication: PAIN
  2. SINGULAIR [Concomitant]
     Indication: ASTHMA
  3. SOMA [Concomitant]
     Indication: PAIN
  4. NEXIUM [Concomitant]
     Indication: GASTROOESOPHAGEAL REFLUX DISEASE
  5. PAMELOR [Concomitant]
     Indication: DEPRESSION
  6. ABILIFY [Concomitant]
     Indication: DEPRESSION
  7. RITONAVIR [Concomitant]
     Indication: HIV INFECTION
     Dosage: UNK
     Dates: start: 20100826, end: 20110913
  8. ALPRAZOLAM [Concomitant]
     Indication: ANXIETY
  9. PROVENTIL [Concomitant]
     Indication: ASTHMA
  10. ZOFRAN [Concomitant]
     Indication: NAUSEA
  11. RALTEGRAVIR [Concomitant]
     Indication: HIV INFECTION
  12. DARUNAVIR [Concomitant]
     Indication: HIV INFECTION
     Dosage: UNK
     Dates: start: 20100826, end: 20110913
  13. EMTRICITABINE/TENOFOVIR DISOPROXIL FUMARATE [Suspect]
     Indication: HIV INFECTION
     Dosage: 1 DF, QD
     Route: 048
     Dates: start: 20100826, end: 20110913

REACTIONS (2)
  - RENAL FAILURE ACUTE [None]
  - RHABDOMYOLYSIS [None]
